FAERS Safety Report 7607031-9 (Version None)
Quarter: 2011Q3

REPORT INFORMATION
  Report Type: 
  Country: None (occurrence: None)
  Receive Date: 20110713
  Receipt Date: 20110711
  Transmission Date: 20111222
  Serious: Yes (Death, Other)
  Sender: FDA-Public Use
  Company Number: US-AMGEN-QUU420658

PATIENT
  Age: 86 Year
  Sex: Female

DRUGS (3)
  1. CORTICOSTEROID NOS [Concomitant]
     Dosage: UNK UNK, UNK
     Dates: start: 20081024
  2. NPLATE [Suspect]
     Indication: IDIOPATHIC THROMBOCYTOPENIC PURPURA
     Dosage: .5 A?G/KG, UNK
     Dates: start: 20091119, end: 20100324
  3. IMMUNOGLOBULINS [Concomitant]
     Dosage: UNK UNK, UNK
     Route: 042
     Dates: start: 20081025

REACTIONS (5)
  - THROMBOSIS [None]
  - THERAPEUTIC RESPONSE DECREASED [None]
  - DEATH [None]
  - EMBOLISM [None]
  - THROMBOCYTOPENIA [None]
